FAERS Safety Report 5738633-2 (Version None)
Quarter: 2008Q2

REPORT INFORMATION
  Report Type: 
  Country: None (occurrence: None)
  Receive Date: 20080513
  Receipt Date: 20080513
  Transmission Date: 20081010
  Serious: No
  Sender: FDA-Public Use
  Company Number: None

PATIENT

DRUGS (1)
  1. SINGULAIR [Suspect]

REACTIONS (8)
  - ASTHMA [None]
  - COMPLETED SUICIDE [None]
  - DEPRESSION [None]
  - ECONOMIC PROBLEM [None]
  - GUN SHOT WOUND [None]
  - PERSONALITY CHANGE [None]
  - POISONING [None]
  - VARICELLA [None]
